FAERS Safety Report 4743475-0 (Version None)
Quarter: 2005Q3

REPORT INFORMATION
  Report Type: 
  Country: None (occurrence: None)
  Receive Date: 20050812
  Receipt Date: 20050808
  Transmission Date: 20060218
  Serious: Yes (Hospitalization)
  Sender: FDA-Public Use
  Company Number: 2005UW11791

PATIENT

DRUGS (3)
  1. IRESSA [Suspect]
     Indication: PANCREATIC CARCINOMA
     Route: 048
     Dates: start: 20050630
  2. PACLITAXEL [Suspect]
     Indication: PANCREATIC CARCINOMA
     Dates: start: 20050712, end: 20050808
  3. RADIATION [Suspect]
     Indication: PANCREATIC CARCINOMA
     Dates: start: 20050711, end: 20050808

REACTIONS (4)
  - DEHYDRATION [None]
  - DIZZINESS [None]
  - NAUSEA [None]
  - VOMITING [None]
